FAERS Safety Report 12873348 (Version 1)
Quarter: 2016Q4

REPORT INFORMATION
  Report Type: Spontaneous
  Country: US (occurrence: US)
  Receive Date: 20161021
  Receipt Date: 20161021
  Transmission Date: 20170207
  Serious: No
  Sender: FDA-Public Use
  Company Number: US-ALLERGAN-1518048US

PATIENT
  Age: 73 Year
  Sex: Female
  Weight: 65.76 kg

DRUGS (6)
  1. FML [Suspect]
     Active Substance: FLUOROMETHOLONE
     Indication: PSORIASIS
     Dosage: UNK
     Route: 047
     Dates: start: 201503, end: 201508
  2. POTASSIUM [Concomitant]
     Active Substance: POTASSIUM
     Indication: SUPPLEMENTATION THERAPY
     Route: 048
  3. PREMARIN [Concomitant]
     Active Substance: ESTROGENS, CONJUGATED
     Indication: HORMONE THERAPY
     Route: 065
  4. HYDROCHLOROTHIAZIDE. [Concomitant]
     Active Substance: HYDROCHLOROTHIAZIDE
     Indication: HYPERTENSION
  5. FML [Suspect]
     Active Substance: FLUOROMETHOLONE
     Indication: DRY EYE
     Dosage: UNK
     Route: 047
     Dates: start: 201503, end: 201508
  6. DOXYCYCLINE. [Concomitant]
     Active Substance: DOXYCYCLINE
     Indication: PSORIASIS
     Dosage: UNK UNK, QD
     Route: 048

REACTIONS (2)
  - Eye swelling [Recovered/Resolved]
  - Eye irritation [Recovered/Resolved]

NARRATIVE: CASE EVENT DATE: 2015
